FAERS Safety Report 9256991 (Version 1)
Quarter: 2013Q2

REPORT INFORMATION
  Report Type: Spontaneous
  Country: IL (occurrence: IL)
  Receive Date: 20130426
  Receipt Date: 20130426
  Transmission Date: 20140414
  Serious: Yes (Other)
  Sender: FDA-Public Use
  Company Number: IL-JNJFOC-20130410308

PATIENT
  Age: 7 Year
  Sex: Female

DRUGS (1)
  1. REMICADE [Suspect]
     Indication: PRODUCT USED FOR UNKNOWN INDICATION
     Dosage: FOR ABOUT 1 YEAR
     Route: 042

REACTIONS (2)
  - Infectious mononucleosis [Recovered/Resolved]
  - Drug ineffective [Recovered/Resolved]
